FAERS Safety Report 6241140-4 (Version None)
Quarter: 2009Q2

REPORT INFORMATION
  Report Type: 
  Country: None (occurrence: None)
  Receive Date: 20090619
  Receipt Date: 20090605
  Transmission Date: 20091009
  Serious: Yes (Death, Hospitalization)
  Sender: FDA-Public Use
  Company Number: KADN20090053

PATIENT
  Age: 59 Year
  Sex: Female

DRUGS (5)
  1. MORPHINE [Suspect]
     Indication: DRUG USE FOR UNKNOWN INDICATION
     Dosage: INGESTION
     Route: 048
     Dates: end: 20070101
  2. LORTAB [Suspect]
     Indication: DRUG USE FOR UNKNOWN INDICATION
     Dosage: INGESTION
     Dates: end: 20070101
  3. XANAX [Suspect]
     Indication: DRUG USE FOR UNKNOWN INDICATION
     Dosage: INGESTION
     Dates: end: 20070101
  4. DRAMAMINE [Suspect]
     Indication: DRUG USE FOR UNKNOWN INDICATION
     Dosage: INGESTION
     Route: 048
     Dates: end: 20070101
  5. DIPHENHYDRAMINE HCL [Suspect]
     Indication: DRUG USE FOR UNKNOWN INDICATION
     Dosage: INGESTION
     Dates: end: 20070101

REACTIONS (9)
  - ALANINE AMINOTRANSFERASE INCREASED [None]
  - AREFLEXIA [None]
  - ASPARTATE AMINOTRANSFERASE INCREASED [None]
  - BLOOD CREATININE INCREASED [None]
  - BLOOD PRESSURE SYSTOLIC DECREASED [None]
  - CARDIO-RESPIRATORY ARREST [None]
  - COMPLETED SUICIDE [None]
  - MULTIPLE DRUG OVERDOSE [None]
  - PUPIL FIXED [None]
